FAERS Safety Report 14125617 (Version 1)
Quarter: 2017Q4

REPORT INFORMATION
  Report Type: Spontaneous
  Country: DE (occurrence: DE)
  Receive Date: 20171025
  Receipt Date: 20171025
  Transmission Date: 20180321
  Serious: Yes (Other)
  Sender: FDA-Public Use
  Company Number: DE-SA-2017SA204909

PATIENT
  Age: 52 Year
  Sex: Female

DRUGS (3)
  1. ENOXAPARIN SODIUM. [Suspect]
     Active Substance: ENOXAPARIN SODIUM
     Indication: ANTICOAGULANT THERAPY
     Route: 065
  2. ANTITHROMBIN III [Concomitant]
     Active Substance: ANTITHROMBIN III HUMAN
     Indication: ANTICOAGULANT THERAPY
  3. PROTEIN C (COAGULATION INHIBITOR) [Concomitant]
     Active Substance: PROTEIN C
     Indication: ANTICOAGULANT THERAPY

REACTIONS (2)
  - Pelvic venous thrombosis [Unknown]
  - Drug ineffective [Unknown]
